FAERS Safety Report 24537676 (Version 1)
Quarter: 2024Q4

REPORT INFORMATION
  Report Type: Report from Study
  Country: JP (occurrence: JP)
  Receive Date: 20241023
  Receipt Date: 20241023
  Transmission Date: 20250115
  Serious: Yes (Other)
  Sender: JOHNSON AND JOHNSON
  Company Number: JP-JNJFOC-20240480875

PATIENT
  Age: 79 Year
  Sex: Male
  Weight: 57 kg

DRUGS (3)
  1. ERLEADA [Suspect]
     Active Substance: APALUTAMIDE
     Indication: Prostate cancer metastatic
     Route: 048
     Dates: start: 20240326
  2. CALONAL [Concomitant]
     Active Substance: ACETAMINOPHEN
     Indication: Myalgia
     Dosage: DOSE UNKNOWN
     Route: 048
     Dates: start: 202404
  3. DENOSUMAB [Concomitant]
     Active Substance: DENOSUMAB
     Indication: Prostate cancer metastatic
     Dosage: DOSE UNKNOWN
     Route: 058

REACTIONS (17)
  - Blood pressure increased [Recovering/Resolving]
  - Glaucoma [Not Recovered/Not Resolved]
  - Myalgia [Not Recovered/Not Resolved]
  - Oedema peripheral [Recovered/Resolved]
  - Abdominal pain lower [Recovering/Resolving]
  - Leukoderma [Recovering/Resolving]
  - Oropharyngeal discomfort [Recovered/Resolved]
  - Fatigue [Not Recovered/Not Resolved]
  - Back pain [Recovering/Resolving]
  - Pruritus [Recovering/Resolving]
  - Erythema [Recovering/Resolving]
  - Productive cough [Recovered/Resolved]
  - Glycosylated haemoglobin increased [Not Recovered/Not Resolved]
  - Heat illness [Recovered/Resolved]
  - Tongue erosion [Recovered/Resolved]
  - Tongue eruption [Recovered/Resolved]
  - Taste disorder [Recovered/Resolved]

NARRATIVE: CASE EVENT DATE: 20240101
